FAERS Safety Report 5388337-3 (Version None)
Quarter: 2007Q3

REPORT INFORMATION
  Report Type: 
  Country: None (occurrence: None)
  Receive Date: 20070716
  Receipt Date: 20070522
  Transmission Date: 20080115
  Serious: No
  Sender: FDA-Public Use
  Company Number: A0652075A

PATIENT
  Age: 63 Year
  Sex: Female

DRUGS (1)
  1. NICORETTE [Suspect]
     Dates: start: 20061228

REACTIONS (3)
  - DYSPHONIA [None]
  - INTENTIONAL DRUG MISUSE [None]
  - PHARYNGOLARYNGEAL PAIN [None]
